FAERS Safety Report 14206322 (Version 1)
Quarter: 2017Q4

REPORT INFORMATION
  Report Type: Other
  Country: IT (occurrence: IT)
  Receive Date: 20171120
  Receipt Date: 20171120
  Transmission Date: 20180321
  Serious: Yes (Hospitalization)
  Sender: FDA-Public Use
  Company Number: IT-B. BRAUN MEDICAL INC.-2034681

PATIENT
  Age: 77 Year
  Sex: Male

DRUGS (1)
  1. CEFTRIAXONE AND DEXTROSE [Suspect]
     Active Substance: CEFTRIAXONE SODIUM

REACTIONS (7)
  - Pulmonary embolism [None]
  - Abdominal pain [None]
  - Pruritus generalised [None]
  - Diarrhoea [None]
  - Dizziness [None]
  - Tachypnoea [None]
  - Chest pain [None]
